FAERS Safety Report 6391185-9 (Version None)
Quarter: 2009Q4

REPORT INFORMATION
  Report Type: 
  Country: None (occurrence: None)
  Receive Date: 20091007
  Receipt Date: 20090924
  Transmission Date: 20100525
  Serious: Yes (Hospitalization)
  Sender: FDA-Public Use
  Company Number: JP-PFIZER INC-2009277868

PATIENT
  Age: 40 Year

DRUGS (5)
  1. SERTRALINE HCL [Suspect]
     Indication: DEPRESSION
     Dosage: UNK
     Route: 048
  2. NORTRIPTYLINE HYDROCHLORIDE [Suspect]
     Indication: DEPRESSION
  3. MIANSERIN HYDROCHLORIDE [Suspect]
     Indication: DEPRESSION
  4. BROTIZOLAM [Suspect]
     Indication: DEPRESSION
  5. AMANTADINE HYDROCHLORIDE [Suspect]
     Indication: DEPRESSION

REACTIONS (1)
  - BRUGADA SYNDROME [None]
